FAERS Safety Report 7754352-5 (Version None)
Quarter: 2011Q3

REPORT INFORMATION
  Report Type: 
  Country: None (occurrence: None)
  Receive Date: 20110915
  Receipt Date: 20110901
  Transmission Date: 20111222
  Serious: Yes (Hospitalization)
  Sender: FDA-Public Use
  Company Number: JP-BAYER-2011-078151

PATIENT
  Age: 70 Year
  Sex: Female
  Weight: 45 kg

DRUGS (10)
  1. ASPIRIN [Suspect]
     Indication: LACUNAR INFARCTION
     Dosage: UNK
     Route: 048
  2. CILNIDIPINE [Concomitant]
     Route: 048
  3. DILTIAZEM HCL [Concomitant]
     Route: 048
  4. HEPARIN [Suspect]
     Dosage: CONTINUOUS INFUSION
     Route: 042
  5. DOPAMINE HCL [Concomitant]
     Indication: PULMONARY EMBOLISM
     Dosage: 15MCG/KG/MIN
     Route: 042
  6. FUROSEMIDE [Concomitant]
     Route: 048
  7. DOPAMINE HCL [Concomitant]
     Dosage: 6 MCG/KG/MIN ON ADMISSION TO ICU
     Route: 042
  8. HEPARIN [Suspect]
     Indication: PULMONARY EMBOLISM
     Dosage: DAILY DOSE 3000 U
     Route: 042
  9. ADRENALIN IN OIL INJ [Concomitant]
     Indication: PULMONARY EMBOLISM
     Dosage: DAILY DOSE 1 MG
     Route: 042
  10. DIURETICS [Concomitant]
     Indication: HEPATIC FUNCTION ABNORMAL
     Route: 065

REACTIONS (2)
  - LIVER INJURY [None]
  - SHOCK HAEMORRHAGIC [None]
